FAERS Safety Report 4383130-2 (Version None)
Quarter: 2004Q2

REPORT INFORMATION
  Report Type: 
  Country: None (occurrence: None)
  Receive Date: 20040618
  Receipt Date: 20040531
  Transmission Date: 20050107
  Serious: Yes (Other)
  Sender: FDA-Public Use
  Company Number: JP_040603248

PATIENT
  Age: 64 Year
  Sex: Male
  Weight: 48 kg

DRUGS (12)
  1. VANCOMYCIN [Suspect]
     Indication: STAPHYLOCOCCAL SEPSIS
     Dosage: 1000 MG/2 DAY
     Dates: start: 20040402, end: 20040414
  2. ASPIRIN [Concomitant]
  3. ALDACTONE [Concomitant]
  4. DIGOXIN [Concomitant]
  5. BIOLACTYL [Concomitant]
  6. PLETAL [Concomitant]
  7. BLOPRESS(CANDESARTAN CILEXETIL) [Concomitant]
  8. LASIX [Concomitant]
  9. HANP(CARPERITIDE) [Concomitant]
  10. HUMULIN R [Concomitant]
  11. MILRINONE LACTATE [Concomitant]
  12. LASIX [Concomitant]

REACTIONS (4)
  - DRUG ERUPTION [None]
  - GENERALISED ERYTHEMA [None]
  - HEPATIC FUNCTION ABNORMAL [None]
  - VIRAL INFECTION [None]
